FAERS Safety Report 4265860-6 (Version None)
Quarter: 2004Q1

REPORT INFORMATION
  Report Type: 
  Country: None (occurrence: None)
  Receive Date: 20040106
  Receipt Date: 20031222
  Transmission Date: 20041129
  Serious: Yes (Hospitalization)
  Sender: FDA-Public Use
  Company Number: 182973

PATIENT
  Age: 54 Year
  Sex: Female

DRUGS (1)
  1. AVONEX [Suspect]
     Indication: MULTIPLE SCLEROSIS
     Dosage: 30 MCG QW IM
     Route: 030
     Dates: start: 19971001

REACTIONS (5)
  - COLITIS ISCHAEMIC [None]
  - INTESTINAL PROLAPSE [None]
  - SEPSIS [None]
  - WEIGHT DECREASED [None]
  - WOUND [None]
